FAERS Safety Report 9325663 (Version 1)
Quarter: 2013Q2

REPORT INFORMATION
  Report Type: Spontaneous
  Country: US (occurrence: None)
  Receive Date: 20130531
  Receipt Date: 20130531
  Transmission Date: 20140414
  Serious: Yes (Other)
  Sender: FDA-Public Use
  Company Number: None

PATIENT
  Age: 12 Year
  Sex: Female
  Weight: 59.88 kg

DRUGS (2)
  1. HALDOL [Suspect]
     Indication: AFFECTIVE DISORDER
     Route: 048
     Dates: start: 201210, end: 20130528
  2. DEPAKOTE [Concomitant]

REACTIONS (1)
  - Neutropenia [None]
